FAERS Safety Report 5269050-X (Version None)
Quarter: 2007Q1

REPORT INFORMATION
  Report Type: 
  Country: None (occurrence: None)
  Receive Date: 20070319
  Receipt Date: 20070312
  Transmission Date: 20070707
  Serious: Yes (Hospitalization)
  Sender: FDA-Public Use
  Company Number: 2007CG00413

PATIENT
  Age: 85 Year
  Sex: Female
  Weight: 55 kg

DRUGS (2)
  1. NOLVADEX [Suspect]
     Indication: BREAST CANCER
     Route: 048
     Dates: start: 19991201, end: 20021209
  2. RADIOTHERAPY [Suspect]
     Indication: BREAST CANCER
     Dosage: 65 GRAYS OVER 35 SESSIONS
     Dates: start: 19991108, end: 19991220

REACTIONS (1)
  - BRONCHIOLITIS [None]
